FAERS Safety Report 10376017 (Version 4)
Quarter: 2014Q3

REPORT INFORMATION
  Report Type: Spontaneous
  Country: US (occurrence: None)
  Receive Date: 20140801
  Receipt Date: 20140917
  Transmission Date: 20150326
  Serious: Yes (Other)
  Sender: FDA-Public Use
  Company Number: ADR-2014-00579

PATIENT
  Age: 36 Year
  Sex: Female

DRUGS (10)
  1. TEGRETOL [Suspect]
     Active Substance: CARBAMAZEPINE
  2. PAIN MEDICATION [Suspect]
     Active Substance: UNSPECIFIED INGREDIENT
  3. ORAL MEDICATION [Suspect]
     Active Substance: UNSPECIFIED INGREDIENT
  4. PROPANOLOL [Suspect]
     Active Substance: PROPRANOLOL HYDROCHLORIDE
  5. LIORESAL [Suspect]
     Active Substance: BACLOFEN
     Indication: MUSCLE SPASTICITY
     Route: 048
  6. AVONEX [Suspect]
     Active Substance: INTERFERON BETA-1A
  7. GABAPENTIN. [Suspect]
     Active Substance: GABAPENTIN
  8. OXYCODONE [Suspect]
     Active Substance: OXYCODONE
  9. BACLOFEN. [Suspect]
     Active Substance: BACLOFEN
  10. SENNA [Suspect]
     Active Substance: SENNA LEAF\SENNOSIDES\SENNOSIDES A AND B

REACTIONS (15)
  - Pyrexia [None]
  - Implant site warmth [None]
  - Condition aggravated [None]
  - Post procedural complication [None]
  - Implant site swelling [None]
  - Pain [None]
  - Hypoaesthesia [None]
  - Cerebrospinal fluid leakage [None]
  - Suture rupture [None]
  - No therapeutic response [None]
  - Muscle spasticity [None]
  - Pain of skin [None]
  - Self-medication [None]
  - Implant site extravasation [None]
  - Pseudomeningocele [None]
